FAERS Safety Report 24722598 (Version 1)
Quarter: 2024Q4

REPORT INFORMATION
  Report Type: Report from Study
  Country: DE (occurrence: DE)
  Receive Date: 20241211
  Receipt Date: 20241211
  Transmission Date: 20250115
  Serious: Yes (Other)
  Sender: ABBVIE
  Company Number: DE-ABBVIE-5817358

PATIENT
  Age: 67 Year
  Sex: Male

DRUGS (5)
  1. FOSCARBIDOPA\FOSLEVODOPA [Suspect]
     Active Substance: FOSCARBIDOPA\FOSLEVODOPA
     Indication: Parkinson^s disease
     Dosage: CRN: 0.42 ML/H, CR: 0.48 ML/H, CRH: 0.54 ML/H, ED: 0.3 ML?LAST ADMIN DATE: 2024
     Route: 058
     Dates: start: 20240507
  2. FOSCARBIDOPA\FOSLEVODOPA [Suspect]
     Active Substance: FOSCARBIDOPA\FOSLEVODOPA
     Dosage: CRN: 0.54 ML/H, CR: 0.60 ML/H, CRD: 0.66 ML/H, ED: 0.30 ML
     Route: 058
     Dates: start: 2024, end: 2024
  3. FOSCARBIDOPA\FOSLEVODOPA [Suspect]
     Active Substance: FOSCARBIDOPA\FOSLEVODOPA
     Dosage: SD: 0.30 ML; CRN: 0.32 ML/H; CR: 0.42 ML/H; CRD: 0.48 ML/H; ED: 0.20 ML
     Route: 058
     Dates: start: 2024, end: 2024
  4. FOSCARBIDOPA\FOSLEVODOPA [Suspect]
     Active Substance: FOSCARBIDOPA\FOSLEVODOPA
     Dosage: CRN: 0.66 ML/H, CR: 0.72 ML/H, CRH: 0.78 ML/H, ED: 0.30 ML
     Route: 058
     Dates: start: 2024
  5. BENSERAZIDE HYDROCHLORIDE\LEVODOPA [Concomitant]
     Active Substance: BENSERAZIDE HYDROCHLORIDE\LEVODOPA
     Indication: Product used for unknown indication
     Dosage: TIME INTERVAL: 0.33333333 DAYS

REACTIONS (12)
  - Urinary tract obstruction [Unknown]
  - Gait disturbance [Not Recovered/Not Resolved]
  - On and off phenomenon [Not Recovered/Not Resolved]
  - Malaise [Not Recovered/Not Resolved]
  - Speech disorder [Not Recovered/Not Resolved]
  - Therapeutic product effect variable [Not Recovered/Not Resolved]
  - Hyperkinesia [Unknown]
  - Dyskinesia [Unknown]
  - Infusion site inflammation [Unknown]
  - Weight decreased [Unknown]
  - Renal disorder [Unknown]
  - Drug ineffective [Unknown]

NARRATIVE: CASE EVENT DATE: 20240101
